FAERS Safety Report 5005684-5 (Version None)
Quarter: 2006Q2

REPORT INFORMATION
  Report Type: 
  Country: None (occurrence: None)
  Receive Date: 20060515
  Receipt Date: 20060502
  Transmission Date: 20061013
  Serious: Yes (Other)
  Sender: FDA-Public Use
  Company Number: HQWYE131503MAY06

PATIENT
  Age: 41 Year
  Sex: Male

DRUGS (1)
  1. ADVIL [Suspect]
     Indication: SHOULDER PAIN
     Dosage: 400 MG 3X PER 1 DAY
     Route: 048

REACTIONS (1)
  - OPTIC NEURITIS RETROBULBAR [None]
